FAERS Safety Report 4547373-7 (Version None)
Quarter: 2005Q1

REPORT INFORMATION
  Report Type: 
  Country: None (occurrence: None)
  Receive Date: 20050107
  Receipt Date: 20040914
  Transmission Date: 20050727
  Serious: Yes (Other)
  Sender: FDA-Public Use
  Company Number: FR-ROCHE-380953

PATIENT
  Age: 34 Year
  Sex: Male

DRUGS (1)
  1. ROACCUTANE [Suspect]
     Indication: ACNE
     Route: 048
     Dates: start: 19890615, end: 19940615

REACTIONS (2)
  - AZOOSPERMIA [None]
  - EPIDIDYMAL DISORDER [None]
